FAERS Safety Report 6816503-6 (Version None)
Quarter: 2010Q3

REPORT INFORMATION
  Report Type: 
  Country: None (occurrence: None)
  Receive Date: 20100705
  Receipt Date: 20100629
  Transmission Date: 20110219
  Serious: Yes (Hospitalization)
  Sender: FDA-Public Use
  Company Number: FR-BRISTOL-MYERS SQUIBB COMPANY-15173685

PATIENT
  Age: 63 Year
  Sex: Male
  Weight: 85 kg

DRUGS (2)
  1. APROVEL [Suspect]
     Indication: HYPERTENSION
     Dates: start: 20090301
  2. DILTIAZEM [Concomitant]
     Dosage: STOPPED

REACTIONS (4)
  - HYPOTENSION [None]
  - HYPOTHYROIDISM [None]
  - RENAL FAILURE ACUTE [None]
  - RHABDOMYOLYSIS [None]
